FAERS Safety Report 9817262 (Version 1)
Quarter: 2014Q1

REPORT INFORMATION
  Report Type: Report from Study
  Country: US (occurrence: US)
  Receive Date: 20140115
  Receipt Date: 20140115
  Transmission Date: 20141002
  Serious: Yes (Other)
  Sender: FDA-Public Use
  Company Number: US-ROCHE-1332979

PATIENT
  Sex: Female
  Weight: 70 kg

DRUGS (11)
  1. XOLAIR [Suspect]
     Indication: PRODUCT USED FOR UNKNOWN INDICATION
     Route: 065
  2. IPRATROPIUM BROMIDE [Concomitant]
     Dosage: 4-6 HOURS AS REQUIRED, 1 VIAL PER NEBULIZER
     Route: 065
  3. ZANTAC [Concomitant]
     Dosage: 1-2 PER DAY AS REQUIRED
     Route: 048
  4. ATROVENT [Concomitant]
     Dosage: 2 SPRAY IN EACH NOSTRIL
     Route: 065
  5. FUROSEMIDE [Concomitant]
     Dosage: 1 TABLET
     Route: 048
  6. FLUTTER [Concomitant]
     Dosage: 10-15 MINUTES, 3-4 PER DAY
     Route: 065
  7. SINGULAIR [Concomitant]
     Dosage: 1 TAB
     Route: 065
  8. ZYRTEC [Concomitant]
     Dosage: 1 TAB
     Route: 065
  9. SYMBICORT [Concomitant]
     Dosage: 2 PUFF BID, 160-4.5
     Route: 065
  10. ALBUTEROL SULFATE [Concomitant]
     Dosage: 2 PUFFS QID PRN
     Route: 048
  11. BENICAR HCT [Concomitant]
     Dosage: 1 TAB, 40-12.5
     Route: 048

REACTIONS (6)
  - Pneumonia [Unknown]
  - Blood immunoglobulin E increased [Unknown]
  - Fatigue [Unknown]
  - Malaise [Unknown]
  - Cough [Unknown]
  - Headache [Unknown]
